FAERS Safety Report 19278306 (Version 1)
Quarter: 2021Q2

REPORT INFORMATION
  Report Type: Spontaneous
  Country: US (occurrence: US)
  Receive Date: 20210520
  Receipt Date: 20210520
  Transmission Date: 20210717
  Serious: Yes (Hospitalization)
  Sender: FDA-Public Use
  Company Number: None

PATIENT
  Age: 81 Year
  Sex: Female
  Weight: 72.12 kg

DRUGS (14)
  1. HEPARIN [Concomitant]
     Active Substance: HEPARIN SODIUM
  2. NORMAL SALINE [Concomitant]
     Active Substance: SODIUM CHLORIDE
  3. ACETAMINOPHEN. [Concomitant]
     Active Substance: ACETAMINOPHEN
  4. APIXABAN [Concomitant]
     Active Substance: APIXABAN
  5. LOPERAMIDE [Concomitant]
     Active Substance: LOPERAMIDE
  6. MELATONIN [Concomitant]
     Active Substance: MELATONIN
  7. OXYCODONE [Concomitant]
     Active Substance: OXYCODONE
  8. PANTOPRAZOLE [Concomitant]
     Active Substance: PANTOPRAZOLE
  9. IRINOTECAN LIPOSOME (MM?398, ONIVYDE) [Suspect]
     Active Substance: IRINOTECAN HYDROCHLORIDE
     Dates: end: 20210506
  10. FENTANYL. [Concomitant]
     Active Substance: FENTANYL
  11. FLUCONAZOLE. [Concomitant]
     Active Substance: FLUCONAZOLE
  12. 5?FLUOROURACIL (5?FU) [Suspect]
     Active Substance: FLUOROURACIL
     Dates: end: 20210508
  13. LEUCOVORIN CALCIUM. [Suspect]
     Active Substance: LEUCOVORIN CALCIUM
     Dates: end: 20210506
  14. NYSTATIN. [Concomitant]
     Active Substance: NYSTATIN

REACTIONS (8)
  - Hypoxia [None]
  - Hyponatraemia [None]
  - Fall [None]
  - Tachycardia [None]
  - Failure to thrive [None]
  - Abdominal pain [None]
  - Pulmonary hypertension [None]
  - Acute kidney injury [None]

NARRATIVE: CASE EVENT DATE: 20210511
